FAERS Safety Report 10038158 (Version 1)
Quarter: 2014Q1

REPORT INFORMATION
  Report Type: Spontaneous
  Country: US (occurrence: None)
  Receive Date: 20140306
  Receipt Date: 20140306
  Transmission Date: 20141002
  Serious: Yes (Other)
  Sender: FDA-Public Use
  Company Number: 163-21880-13105263

PATIENT
  Age: 54 Year
  Sex: Female
  Weight: 63.05 kg

DRUGS (14)
  1. REVLIMID [Suspect]
     Indication: PLASMA CELL MYELOMA
     Dosage: 5 MG, 1 IN 1 D, PO
     Route: 048
     Dates: start: 201202, end: 20131031
  2. PACKED RED BLOOD CELLS (BLOOD CELLS, PACKED HUMAN) (INJECTION) [Concomitant]
  3. RENVELA (SEVELAMER CARBONATE) (UNKNOWN) [Concomitant]
  4. ARANESP (DARBEPOETIN ALFA) (UNKNOWN) [Concomitant]
  5. LEVOTHYROXINE (LEVOTHYROXINE) (UNKNOWN) [Concomitant]
  6. SIMVASTATIN (SIMVASTATIN) (UNKNOWN) [Concomitant]
  7. PANTOPRAZOLE (PANTOPRAZOLE) (UNKNOWN) [Concomitant]
  8. DIALYVITE (DIALYVITE) (UNKNOWN) [Concomitant]
  9. PAXIL (PAROXETINE HYDROCHLORIDE) (UNKNOWN) [Concomitant]
  10. ASA (ACETYLSALICYLIC ACID) (UNKNOWN) [Concomitant]
  11. MAGNESIUM OXIDE) (MAGNESIUM OXIDE) (UNKNOWN) [Concomitant]
  12. VITAMIN B12 (CYANOCOBALAMIN) (UNKNOWN) [Concomitant]
  13. METOPROLOL (METOPROLOL) (UNKNOWN) [Concomitant]
  14. VANCOMYCIN (VANCOMYCIN) (UNKNOWN) [Concomitant]

REACTIONS (4)
  - Haemoglobin decreased [None]
  - Thrombocytopenia [None]
  - Full blood count decreased [None]
  - Pyrexia [None]
